FAERS Safety Report 22394493 (Version 1)
Quarter: 2023Q2

REPORT INFORMATION
  Report Type: Spontaneous
  Country: JP (occurrence: JP)
  Receive Date: 20230601
  Receipt Date: 20230601
  Transmission Date: 20230721
  Serious: Yes (Other)
  Sender: FDA-Public Use
  Company Number: JP-PFIZER INC-PV202300095735

PATIENT
  Age: 64 Year
  Sex: Female

DRUGS (3)
  1. SUNITINIB MALATE [Suspect]
     Active Substance: SUNITINIB MALATE
     Indication: Gastrointestinal stromal tumour
  2. METHADONE [Concomitant]
     Active Substance: METHADONE HYDROCHLORIDE
  3. REGORAFENIB [Concomitant]
     Active Substance: REGORAFENIB

REACTIONS (1)
  - Myelosuppression [Unknown]
